FAERS Safety Report 15603450 (Version 1)
Quarter: 2018Q4

REPORT INFORMATION
  Report Type: Report from Study
  Country: DE (occurrence: DE)
  Receive Date: 20181109
  Receipt Date: 20181109
  Transmission Date: 20190205
  Serious: Yes (Hospitalization, Other)
  Sender: FDA-Public Use
  Company Number: DE-SHIRE-DE201839298

PATIENT

DRUGS (2)
  1. REVESTIVE [Suspect]
     Active Substance: TEDUGLUTIDE
     Indication: SHORT-BOWEL SYNDROME
     Dosage: UNK (DOSE: 0.28)
     Route: 065
     Dates: start: 20180315
  2. CEFAZOLIN [Concomitant]
     Active Substance: CEFAZOLIN
     Indication: VASCULAR DEVICE INFECTION
     Dosage: 1 G, 3X/DAY:TID
     Route: 065
     Dates: start: 20180727

REACTIONS (4)
  - Staphylococcal infection [Unknown]
  - Vascular device infection [Recovering/Resolving]
  - Eye disorder [Unknown]
  - Herpes zoster [Recovering/Resolving]

NARRATIVE: CASE EVENT DATE: 20180713
